FAERS Safety Report 5307341-4 (Version None)
Quarter: 2007Q2

REPORT INFORMATION
  Report Type: 
  Country: None (occurrence: None)
  Receive Date: 20070425
  Receipt Date: 20070418
  Transmission Date: 20071010
  Serious: Yes (Other)
  Sender: FDA-Public Use
  Company Number: DE-MERCK-0704DEU00048

PATIENT
  Sex: Female

DRUGS (2)
  1. HYZAAR [Suspect]
     Route: 048
     Dates: start: 20060101
  2. LOSARTAN POTASSIUM [Concomitant]
     Route: 048
     Dates: start: 20010101, end: 20060101

REACTIONS (1)
  - PULMONARY EMBOLISM [None]
